FAERS Safety Report 9797737 (Version 2)
Quarter: 2014Q1

REPORT INFORMATION
  Report Type: Spontaneous
  Country: US (occurrence: US)
  Receive Date: 20140106
  Receipt Date: 20140127
  Transmission Date: 20141002
  Serious: No
  Sender: FDA-Public Use
  Company Number: US-PFIZER INC-2014001820

PATIENT
  Age: 53 Year
  Sex: Male
  Weight: 81.63 kg

DRUGS (2)
  1. VIAGRA [Suspect]
     Indication: ERECTILE DYSFUNCTION
     Dosage: UNK, AS NEEDED
     Route: 048
     Dates: start: 201107
  2. NEXIUM [Concomitant]
     Indication: DYSPEPSIA
     Dosage: 40 MG, DAILY

REACTIONS (1)
  - Influenza [Recovering/Resolving]
